FAERS Safety Report 16766876 (Version 2)
Quarter: 2019Q3

REPORT INFORMATION
  Report Type: Spontaneous
  Country: US (occurrence: US)
  Receive Date: 20190903
  Receipt Date: 20190903
  Transmission Date: 20191005
  Serious: No
  Sender: FDA-Public Use
  Company Number: US-PFIZER INC-2019372125

PATIENT
  Age: 63 Year
  Sex: Female
  Weight: 77.98 kg

DRUGS (1)
  1. ADVIL [Suspect]
     Active Substance: IBUPROFEN
     Dosage: UNK

REACTIONS (4)
  - Epistaxis [Unknown]
  - Product physical issue [Unknown]
  - Poor quality product administered [Unknown]
  - Product commingling [Unknown]
